FAERS Safety Report 5139927-4 (Version None)
Quarter: 2006Q4

REPORT INFORMATION
  Report Type: 
  Country: None (occurrence: None)
  Receive Date: 20061031
  Receipt Date: 20060306
  Transmission Date: 20070319
  Serious: Yes (Hospitalization)
  Sender: FDA-Public Use
  Company Number: US-ELI_LILLY_AND_COMPANY-US200605005638

PATIENT
  Age: 43 Year
  Sex: Male
  Weight: 64.852 kg

DRUGS (1)
  1. ZYPREXA [Suspect]
     Indication: DEPRESSION
     Dosage: 5 MG, UNK
     Route: 048
     Dates: start: 20030301, end: 20041101

REACTIONS (7)
  - BLOOD CHOLESTEROL INCREASED [None]
  - BLOOD TRIGLYCERIDES INCREASED [None]
  - CONVULSION [None]
  - DIABETES MELLITUS [None]
  - HYPERTENSION [None]
  - MYOCARDIAL INFARCTION [None]
  - WEIGHT DECREASED [None]
